FAERS Safety Report 8554721-X (Version None)
Quarter: 2012Q3

REPORT INFORMATION
  Report Type: 
  Country: None (occurrence: None)
  Receive Date: 20120731
  Receipt Date: 20120730
  Transmission Date: 20120928
  Serious: Yes (Life-Threatening, Hospitalization, Other)
  Sender: FDA-Public Use
  Company Number: PHHY2011AU106330

PATIENT
  Age: 33 Year
  Sex: Male
  Weight: 110 kg

DRUGS (9)
  1. OXYGEN [Concomitant]
  2. CLOZARIL [Suspect]
     Dosage: 12.5 MG
  3. AMOXICILLIN [Concomitant]
     Dosage: 500 MG, TID
  4. CLOZARIL [Suspect]
     Indication: SCHIZOPHRENIA
     Dosage: 700 MG
     Route: 048
  5. CLOZARIL [Suspect]
     Dosage: 100 MG
  6. DIAZEPAM [Concomitant]
     Indication: AGITATION
     Dosage: 20 MG, TID
     Route: 048
     Dates: start: 20111129, end: 20111130
  7. RISPERIDONE [Concomitant]
     Indication: SCHIZOPHRENIA
     Dosage: 75 MG, (EVERY TWO WEEKS)
     Route: 030
  8. ALBUTEROL SULATE [Concomitant]
     Dosage: 5 MG, QID
  9. METRONIDAZOLE [Concomitant]
     Dosage: 400 MG, TID

REACTIONS (13)
  - BLOOD CREATINE PHOSPHOKINASE INCREASED [None]
  - LOSS OF CONSCIOUSNESS [None]
  - BLOOD LACTATE DEHYDROGENASE INCREASED [None]
  - DYSPNOEA [None]
  - BLOOD PROLACTIN INCREASED [None]
  - ORTHOSTATIC HYPOTENSION [None]
  - C-REACTIVE PROTEIN INCREASED [None]
  - WHITE BLOOD CELL COUNT INCREASED [None]
  - ANTIPSYCHOTIC DRUG LEVEL BELOW THERAPEUTIC [None]
  - RED BLOOD CELL COUNT INCREASED [None]
  - OXYGEN SATURATION DECREASED [None]
  - BLOOD CREATININE INCREASED [None]
  - RESPIRATORY TRACT INFECTION [None]
